FAERS Safety Report 16333864 (Version 1)
Quarter: 2019Q2

REPORT INFORMATION
  Report Type: Spontaneous
  Country: HK (occurrence: HK)
  Receive Date: 20190520
  Receipt Date: 20190520
  Transmission Date: 20190711
  Serious: Yes (Other)
  Sender: FDA-Public Use
  Company Number: HK-TAKEDA-2019TUS030799

PATIENT
  Age: 72 Year
  Sex: Male

DRUGS (1)
  1. COLCHICINE. [Suspect]
     Active Substance: COLCHICINE
     Indication: GOUT
     Dosage: 0.5 MILLIGRAM, BID
     Route: 065

REACTIONS (3)
  - Gastritis [Unknown]
  - Duodenal ulcer [Unknown]
  - Gastritis erosive [Unknown]
